FAERS Safety Report 5209344-7 (Version None)
Quarter: 2007Q1

REPORT INFORMATION
  Report Type: 
  Country: None (occurrence: None)
  Receive Date: 20070111
  Receipt Date: 20061228
  Transmission Date: 20070707
  Serious: Yes (Death, Hospitalization)
  Sender: FDA-Public Use
  Company Number: 2006BI017434

PATIENT
  Age: 44 Year
  Sex: Female

DRUGS (6)
  1. NATALIZUMAB [Suspect]
     Indication: MULTIPLE SCLEROSIS
     Dosage: IV
     Route: 042
     Dates: start: 20050101, end: 20050101
  2. NATALIZUMAB [Suspect]
     Indication: MULTIPLE SCLEROSIS
     Dosage: 300 MG QM IV
     Route: 042
     Dates: start: 20061027, end: 20061027
  3. AMANTADINE HCL [Concomitant]
  4. SIMVASTATIN [Concomitant]
  5. NADOLOL [Concomitant]
  6. MULTI-VITAMIN [Concomitant]

REACTIONS (6)
  - HYPERTENSION [None]
  - LEUKOCYTOSIS [None]
  - OSTEOPOROSIS [None]
  - PANCREATITIS [None]
  - PNEUMONIA BACTERIAL [None]
  - SEPTIC SHOCK [None]
